FAERS Safety Report 15786490 (Version 1)
Quarter: 2018Q4

REPORT INFORMATION
  Report Type: Spontaneous
  Country: US (occurrence: US)
  Receive Date: 20181212
  Receipt Date: 20181212
  Transmission Date: 20190205
  Serious: Yes (Other)
  Sender: FDA-Public Use
  Company Number: None

PATIENT
  Age: 51 Year
  Sex: Male

DRUGS (2)
  1. SUBLOCADE [Suspect]
     Active Substance: BUPRENORPHINE
     Indication: DRUG DEPENDENCE
     Route: 058
     Dates: start: 20180924, end: 20181031
  2. EGRIFTA [Concomitant]
     Active Substance: TESAMORELIN

REACTIONS (4)
  - Injection site urticaria [None]
  - Injection site pain [None]
  - Injection site bruising [None]
  - Injection site reaction [None]

NARRATIVE: CASE EVENT DATE: 20181209
